FAERS Safety Report 4962146-9 (Version None)
Quarter: 2006Q1

REPORT INFORMATION
  Report Type: 
  Country: None (occurrence: None)
  Receive Date: 20060329
  Receipt Date: 20060317
  Transmission Date: 20060701
  Serious: Yes (Death, Hospitalization)
  Sender: FDA-Public Use
  Company Number: GXKR2006US01599

PATIENT
  Age: 19 Year
  Sex: Male

DRUGS (5)
  1. MESALAMINE [Suspect]
     Indication: INFLAMMATORY BOWEL DISEASE
  2. AZATHIOPRINE [Suspect]
     Indication: INFLAMMATORY BOWEL DISEASE
  3. PREDNISONE [Suspect]
     Indication: INFLAMMATORY BOWEL DISEASE
  4. INFLIXIMAB (INFLIXIMAB) [Suspect]
     Indication: ANAL FISTULA
  5. ITRACONAZOLE [Concomitant]

REACTIONS (9)
  - LYMPHOCYTE COUNT DECREASED [None]
  - MONOCYTE COUNT DECREASED [None]
  - NEUTROPHIL COUNT INCREASED [None]
  - PNEUMONIA [None]
  - RESPIRATORY DISTRESS [None]
  - RESPIRATORY FAILURE [None]
  - SEPTIC SHOCK [None]
  - TRICHOSPORON INFECTION [None]
  - WHITE BLOOD CELL COUNT DECREASED [None]
